FAERS Safety Report 18547920 (Version 1)
Quarter: 2020Q4

REPORT INFORMATION
  Report Type: Spontaneous
  Country: US (occurrence: US)
  Receive Date: 20201125
  Receipt Date: 20201125
  Transmission Date: 20210114
  Serious: Yes (Other)
  Sender: FDA-Public Use
  Company Number: US-NOVOPROD-768528

PATIENT
  Age: 71 Year
  Sex: Female

DRUGS (2)
  1. LEVEMIR [Suspect]
     Active Substance: INSULIN DETEMIR
     Indication: TYPE 1 DIABETES MELLITUS
     Dosage: 57 IU, BID (IN THE MORNING AND NIGHT)
     Route: 058
     Dates: start: 1990
  2. NOVOLOG [Suspect]
     Active Substance: INSULIN ASPART
     Indication: TYPE 1 DIABETES MELLITUS
     Dosage: BETWEEN 25-30 UNITS PER MEAL
     Route: 058
     Dates: start: 1990

REACTIONS (5)
  - Peripheral artery occlusion [Unknown]
  - Injection site discolouration [Unknown]
  - Coronary artery occlusion [Unknown]
  - Injection site mass [Unknown]
  - Fluid retention [Unknown]
